FAERS Safety Report 8961868 (Version 1)
Quarter: 2012Q4

REPORT INFORMATION
  Report Type: 
  Country: US (occurrence: US)
  Receive Date: 20121212
  Receipt Date: 20121212
  Transmission Date: 20130627
  Serious: No
  Sender: FDA-Public Use
  Company Number: US-VERTEX PHARMACEUTICALS INC.-2012-025690

PATIENT
  Sex: Male
  Weight: 89 kg

DRUGS (5)
  1. VX-950 (TELAPREVIR) [Suspect]
     Indication: HEPATITIS C
     Dosage: 750 mg, tid
     Route: 048
     Dates: start: 201211
  2. RIBASPHERE [Concomitant]
     Indication: HEPATITIS C
     Dosage: 600 mg, bid
     Route: 048
     Dates: start: 201211, end: 201211
  3. RIBASPHERE [Concomitant]
     Dosage: 400 mg, bid
     Route: 048
     Dates: start: 201211
  4. PEGASYS [Concomitant]
     Indication: HEPATITIS C
     Dosage: 180 ?g, qw
     Route: 058
     Dates: start: 201211, end: 201211
  5. PEGASYS [Concomitant]
     Dosage: 90 ?g, qw
     Route: 058
     Dates: start: 201211

REACTIONS (2)
  - Fatigue [Unknown]
  - Platelet count decreased [Unknown]
